FAERS Safety Report 7491395-3 (Version None)
Quarter: 2011Q1

REPORT INFORMATION
  Report Type: 
  Country: None (occurrence: None)
  Receive Date: 20110318
  Receipt Date: 20100311
  Transmission Date: 20110831
  Serious: Yes (Other)
  Sender: FDA-Public Use
  Company Number: 1-0310-17

PATIENT
  Sex: Male

DRUGS (7)
  1. KLONOPIN [Concomitant]
  2. INDERAL [Concomitant]
  3. NORVASC [Concomitant]
  4. CETIRIZINE HCL [Concomitant]
  5. DERMA-SMOOTHE/FS [Suspect]
     Indication: PSORIASIS
     Dosage: TOPICAL
     Route: 061
  6. DERMA-SMOOTHE/FS [Suspect]
     Indication: ECZEMA
     Dosage: TOPICAL
     Route: 061
  7. ACCUPRIL [Concomitant]

REACTIONS (3)
  - SWELLING [None]
  - ERYTHEMA [None]
  - DRUG ADMINISTRATION ERROR [None]
